FAERS Safety Report 14122066 (Version 2)
Quarter: 2018Q3

REPORT INFORMATION
  Report Type: Spontaneous
  Country: IR (occurrence: IR)
  Receive Date: 20171024
  Receipt Date: 20180912
  Transmission Date: 20181010
  Serious: Yes (Other)
  Sender: FDA-Public Use
  Company Number: PHHY2017IR153413

PATIENT
  Age: 53 Year
  Sex: Male

DRUGS (2)
  1. ZOLEDRONATE [Suspect]
     Active Substance: ZOLEDRONIC ACID
     Indication: PRODUCT USED FOR UNKNOWN INDICATION
     Dosage: 2 DF, UNK
     Route: 042
  2. SUTENT [Interacting]
     Active Substance: SUNITINIB MALATE
     Indication: RENAL CELL CARCINOMA
     Dosage: 50 MG, QD
     Route: 065
     Dates: start: 201610

REACTIONS (7)
  - Oral disorder [Recovering/Resolving]
  - Stomatitis [Recovering/Resolving]
  - Osteonecrosis of jaw [Recovering/Resolving]
  - Drug interaction [Unknown]
  - Exposed bone in jaw [Recovering/Resolving]
  - Pain in jaw [Recovering/Resolving]
  - Gingivitis [Recovering/Resolving]
